FAERS Safety Report 21943416 (Version 1)
Quarter: 2023Q1

REPORT INFORMATION
  Report Type: Report from Study
  Country: US (occurrence: US)
  Receive Date: 20230202
  Receipt Date: 20230202
  Transmission Date: 20230418
  Serious: Yes (Other)
  Sender: FDA-Public Use
  Company Number: US-JNJFOC-20230118033

PATIENT
  Age: 47 Year
  Sex: Female

DRUGS (1)
  1. SPRAVATO [Suspect]
     Active Substance: ESKETAMINE
     Indication: Depression
     Dates: start: 20230109, end: 20230109

REACTIONS (3)
  - Maxillofacial operation [Unknown]
  - Somnolence [Unknown]
  - Burning sensation [Unknown]

NARRATIVE: CASE EVENT DATE: 20230109
